FAERS Safety Report 16759787 (Version 1)
Quarter: 2019Q3

REPORT INFORMATION
  Report Type: Spontaneous
  Country: US (occurrence: US)
  Receive Date: 20190830
  Receipt Date: 20190830
  Transmission Date: 20191005
  Serious: No
  Sender: FDA-Public Use
  Company Number: US-TEVA-2019-US-1101508

PATIENT

DRUGS (1)
  1. BUPRENORPHINE TRANSDERMAL PATCH TEVA [Suspect]
     Active Substance: BUPRENORPHINE
     Dosage: FOR 3 MONTHS
     Route: 062

REACTIONS (4)
  - Drug ineffective [Unknown]
  - Adverse event [Unknown]
  - Product adhesion issue [Unknown]
  - Product substitution issue [Unknown]
